FAERS Safety Report 17279678 (Version 2)
Quarter: 2020Q1

REPORT INFORMATION
  Report Type: Spontaneous
  Country: JP (occurrence: JP)
  Receive Date: 20200116
  Receipt Date: 20200211
  Transmission Date: 20200409
  Serious: Yes (Death, Other)
  Sender: FDA-Public Use
  Company Number: JP-AMGEN-JPNSP2020006613

PATIENT
  Age: 63 Year
  Sex: Male
  Weight: 66 kg

DRUGS (15)
  1. PANVITAN [Concomitant]
     Active Substance: VITAMINS
     Indication: ADVERSE REACTION
     Dosage: 1 GRAM, QD
     Route: 048
     Dates: start: 20150630
  2. CARBOPLATIN. [Concomitant]
     Active Substance: CARBOPLATIN
     Indication: LUNG ADENOCARCINOMA
     Dosage: UNK
     Route: 065
  3. ALOXI [Concomitant]
     Active Substance: PALONOSETRON HYDROCHLORIDE
     Indication: NAUSEA
     Dosage: 0.75 MG, QD
     Route: 042
     Dates: start: 20150901
  4. RANMARK [Suspect]
     Active Substance: DENOSUMAB
     Indication: METASTASES TO BONE
     Dosage: UNK
     Route: 065
  5. PEMETREXED. [Concomitant]
     Active Substance: PEMETREXED
     Indication: LUNG ADENOCARCINOMA
     Dosage: UNK
     Route: 065
  6. METHYCOBAL [Concomitant]
     Active Substance: METHYLCOBALAMIN
     Indication: ADVERSE REACTION
     Dosage: 500 MICROGRAM, QD
     Route: 030
     Dates: start: 20150630
  7. NIFEDIPINE. [Concomitant]
     Active Substance: NIFEDIPINE
     Indication: HYPERTENSION
     Dosage: 40 MILLIGRAM, QD
     Route: 048
     Dates: start: 20150714, end: 20160303
  8. BEVACIZUMAB. [Concomitant]
     Active Substance: BEVACIZUMAB
     Indication: LUNG ADENOCARCINOMA
     Dosage: UNK
     Route: 065
  9. DECADRON [Concomitant]
     Active Substance: DEXAMETHASONE
     Indication: NAUSEA
     Dosage: 6.6 MILLIGRAM, QD
     Route: 042
     Dates: start: 20150716, end: 20151016
  10. PROEMEND [Concomitant]
     Active Substance: FOSAPREPITANT
     Indication: NAUSEA
     Dosage: 150 MG, QD
     Route: 042
     Dates: start: 20150901
  11. ALIMTA [Concomitant]
     Active Substance: PEMETREXED DISODIUM
     Indication: LUNG ADENOCARCINOMA
     Dosage: 500 MILLIGRAM, QD
     Route: 042
     Dates: start: 20150716, end: 20151016
  12. CARBOPLATIN. [Concomitant]
     Active Substance: CARBOPLATIN
     Dosage: 500 MG, QD
     Route: 042
     Dates: start: 20150716, end: 20150925
  13. AVASTIN [Concomitant]
     Active Substance: BEVACIZUMAB
     Indication: LUNG ADENOCARCINOMA
     Dosage: 1000 MILLIGRAM
     Route: 042
     Dates: start: 20150716, end: 20151016
  14. LORAZEPAM. [Concomitant]
     Active Substance: LORAZEPAM
     Indication: TENSION
     Dosage: 0.5 MILLIGRAM, TID
     Route: 048
     Dates: start: 20150902
  15. DENOTAS [Concomitant]
     Active Substance: CALCIUM CARBONATE\CHOLECALCIFEROL\MAGNESIUM CARBONATE
     Indication: ADVERSE REACTION
     Dosage: 2 DOSAGE FORM, QD
     Dates: start: 20150726

REACTIONS (2)
  - Angioedema [Recovered/Resolved]
  - Nausea [Unknown]

NARRATIVE: CASE EVENT DATE: 20150923
